FAERS Safety Report 9637384 (Version 1)
Quarter: 2013Q4

REPORT INFORMATION
  Report Type: Report from Study
  Country: MX (occurrence: MX)
  Receive Date: 20131022
  Receipt Date: 20131022
  Transmission Date: 20140711
  Serious: Yes (Other)
  Sender: FDA-Public Use
  Company Number: PHHY2013MX117887

PATIENT
  Age: 44 Year
  Sex: Female

DRUGS (5)
  1. TRILEPTAL [Suspect]
     Indication: CONVULSION
     Dosage: 1 TABLET OF 30 MG DAILY
     Route: 048
  2. TOFRANIL [Suspect]
     Indication: INCONTINENCE
     Dosage: 1/2 OR 1/4 OF TABLET IF IT NECESSARY, UNK
  3. TOFRANIL [Suspect]
     Indication: OFF LABEL USE
  4. GILENYA [Concomitant]
     Indication: MULTIPLE SCLEROSIS
     Dosage: 0.5 MG ONCE DAILY
     Route: 048
  5. NIMOTOP [Concomitant]
     Dosage: 2 AND 1/2, DAILY

REACTIONS (9)
  - Multiple sclerosis relapse [Not Recovered/Not Resolved]
  - Facial asymmetry [Not Recovered/Not Resolved]
  - Dysphonia [Not Recovered/Not Resolved]
  - Cough [Not Recovered/Not Resolved]
  - Pain [Not Recovered/Not Resolved]
  - Asthenia [Not Recovered/Not Resolved]
  - Dizziness [Not Recovered/Not Resolved]
  - Headache [Not Recovered/Not Resolved]
  - Wrong technique in drug usage process [Not Recovered/Not Resolved]
